FAERS Safety Report 10544384 (Version 1)
Quarter: 2014Q4

REPORT INFORMATION
  Report Type: Spontaneous
  Country: US (occurrence: US)
  Receive Date: 20141027
  Receipt Date: 20141027
  Transmission Date: 20150529
  Serious: Yes (Hospitalization)
  Sender: FDA-Public Use
  Company Number: US-GLAXOSMITHKLINE-US2014GSK011741

PATIENT
  Sex: Male

DRUGS (2)
  1. SORIATANE [Suspect]
     Active Substance: ACITRETIN
     Indication: PSORIASIS
  2. SORIATANE [Suspect]
     Active Substance: ACITRETIN
     Indication: PURULENT DISCHARGE
     Dosage: UNK
     Dates: start: 1994

REACTIONS (3)
  - Therapy cessation [Unknown]
  - Nonspecific reaction [Unknown]
  - Malaise [Unknown]
